FAERS Safety Report 8898776 (Version 1)
Quarter: 2012Q4

REPORT INFORMATION
  Report Type: 
  Country: CN (occurrence: CN)
  Receive Date: 20121109
  Receipt Date: 20121109
  Transmission Date: 20130627
  Serious: Yes (Hospitalization, Other)
  Sender: FDA-Public Use
  Company Number: CN-BRISTOL-MYERS SQUIBB COMPANY-17082124

PATIENT
  Age: 59 Year
  Sex: Male

DRUGS (2)
  1. BARACLUDE [Suspect]
     Indication: HEPATIC CIRRHOSIS
  2. BARACLUDE [Suspect]
     Indication: HEPATITIS B

REACTIONS (4)
  - Multiple-drug resistance [Unknown]
  - Hepatitis B DNA increased [Unknown]
  - Alpha 1 foetoprotein increased [Recovered/Resolved]
  - Hepatic function abnormal [Recovered/Resolved]
